FAERS Safety Report 6293515-5 (Version None)
Quarter: 2009Q3

REPORT INFORMATION
  Report Type: 
  Country: None (occurrence: None)
  Receive Date: 20090729
  Receipt Date: 20090723
  Transmission Date: 20100115
  Serious: Yes (Hospitalization)
  Sender: FDA-Public Use
  Company Number: 2009SP015978

PATIENT
  Age: 49 Year
  Sex: Female
  Weight: 50 kg

DRUGS (5)
  1. PEG-INTRON [Suspect]
     Indication: HEPATITIS C
     Dosage: 80 MCG; QW; SC
     Route: 058
     Dates: start: 20081208, end: 20090525
  2. REBETOL [Suspect]
     Indication: HEPATITIS C
     Dosage: 600 MG; QD; PO, ; PO
     Route: 048
     Dates: start: 20090101, end: 20090527
  3. REBETOL [Suspect]
     Indication: HEPATITIS C
     Dosage: 600 MG; QD; PO, ; PO
     Route: 048
     Dates: start: 20081208
  4. URSO 250 [Concomitant]
  5. LIVALO [Concomitant]

REACTIONS (6)
  - ANAEMIA [None]
  - AREFLEXIA [None]
  - DECREASED APPETITE [None]
  - FACIAL PALSY [None]
  - GUILLAIN-BARRE SYNDROME [None]
  - POLYNEUROPATHY [None]
